FAERS Safety Report 4981173-9 (Version None)
Quarter: 2006Q1

REPORT INFORMATION
  Report Type: 
  Country: None (occurrence: None)
  Receive Date: 20060227
  Receipt Date: 20050827
  Transmission Date: 20060701
  Serious: Yes (Hospitalization)
  Sender: FDA-Public Use
  Company Number: WAES 0506USA03836

PATIENT
  Age: 70 Year
  Sex: Female

DRUGS (11)
  1. ZOCOR [Suspect]
     Indication: BLOOD CHOLESTEROL INCREASED
     Dosage: 40 MG DAILY PO
     Route: 048
     Dates: start: 19980101, end: 20041201
  2. ALTACE [Concomitant]
  3. AMBIEN [Concomitant]
  4. CARDIZEM [Concomitant]
  5. LEVOXYL [Concomitant]
  6. NEXIUM [Concomitant]
  7. VALIUM [Concomitant]
  8. ZOLOFT [Concomitant]
  9. AMITRIPTYLINE HYDROCHLORIDE [Concomitant]
  10. ASPIRIN [Concomitant]
  11. GLYBURIDE [Concomitant]

REACTIONS (1)
  - MUSCULAR WEAKNESS [None]
